FAERS Safety Report 15464046 (Version 1)
Quarter: 2018Q4

REPORT INFORMATION
  Report Type: Spontaneous
  Country: GB (occurrence: GB)
  Receive Date: 20181004
  Receipt Date: 20181004
  Transmission Date: 20190204
  Serious: Yes (Other)
  Sender: FDA-Public Use
  Company Number: GB-AUROBINDO-AUR-APL-2018-048950

PATIENT
  Sex: Female

DRUGS (1)
  1. LINEZOLID. [Suspect]
     Active Substance: LINEZOLID
     Indication: SEPSIS
     Dosage: 1200 MILLIGRAM
     Route: 048
     Dates: start: 20180917, end: 20180918

REACTIONS (2)
  - Swollen tongue [Recovering/Resolving]
  - Paraesthesia oral [Recovering/Resolving]

NARRATIVE: CASE EVENT DATE: 20180918
